FAERS Safety Report 9734428 (Version 2)
Quarter: 2013Q4

REPORT INFORMATION
  Report Type: Spontaneous
  Country: US (occurrence: US)
  Receive Date: 20131206
  Receipt Date: 20131206
  Transmission Date: 20140711
  Serious: Yes (Hospitalization)
  Sender: FDA-Public Use
  Company Number: US-BEH-2013035611

PATIENT
  Age: 56 Year
  Sex: Female
  Weight: 78 kg

DRUGS (32)
  1. PRIVIGEN [Suspect]
     Indication: HYPOGLOBULINAEMIA
     Route: 042
     Dates: start: 20130325, end: 20130325
  2. PRIVIGEN [Suspect]
     Route: 042
     Dates: start: 20130422
  3. PRIVIGEN [Suspect]
     Indication: IMMUNODEFICIENCY COMMON VARIABLE
     Route: 042
  4. HYDROCODONE-HOMATROPINE SYRUP [Concomitant]
  5. HEPARIN [Concomitant]
  6. SODIUM CHLORIDE [Concomitant]
     Indication: PREMEDICATION
  7. L-M-X [Concomitant]
     Indication: PREMEDICATION
  8. NYSTATIN [Concomitant]
  9. COUMADIN [Concomitant]
  10. MIDODRINE [Concomitant]
  11. HYDRALAZINE [Concomitant]
  12. POTASSIUM CHLORIDE [Concomitant]
  13. FOLBIC [Concomitant]
  14. XANAX [Concomitant]
  15. MORPHINE SULFATE [Concomitant]
  16. SIMVASTATIN [Concomitant]
  17. FLUDROCORTISONE [Concomitant]
  18. FLONASE [Concomitant]
  19. FLOVENT [Concomitant]
  20. ATROVENT [Concomitant]
  21. HYDROCORTISONE [Concomitant]
  22. MAG DELAY [Concomitant]
  23. THIAMINE [Concomitant]
  24. MS CONTIN [Concomitant]
  25. METOLAZONE [Concomitant]
  26. VITAMIN D [Concomitant]
  27. VITAMIN D3 [Concomitant]
  28. IPRATROPIUM BROMIDE [Concomitant]
  29. BYSTOLIC [Concomitant]
  30. ZANTAC [Concomitant]
  31. ZANAFLEX [Concomitant]
  32. SONATA [Concomitant]

REACTIONS (7)
  - Hospitalisation [Unknown]
  - Fall [Unknown]
  - Contusion [Unknown]
  - Head injury [Unknown]
  - Fall [Unknown]
  - Concussion [Unknown]
  - Urinary tract infection [Unknown]
